FAERS Safety Report 22324191 (Version 1)
Quarter: 2023Q2

REPORT INFORMATION
  Report Type: Spontaneous
  Country: BR (occurrence: BR)
  Receive Date: 20230516
  Receipt Date: 20230516
  Transmission Date: 20230722
  Serious: Yes (Hospitalization, Other)
  Sender: FDA-Public Use
  Company Number: BR-UCBSA-2023024809

PATIENT
  Age: 8 Month
  Sex: Female

DRUGS (13)
  1. KEPPRA [Interacting]
     Active Substance: LEVETIRACETAM
     Indication: Epilepsy
     Dosage: 2.2 MILLILITER, 2X/DAY (BID)
  2. KEPPRA [Interacting]
     Active Substance: LEVETIRACETAM
     Dosage: 60 MILLIGRAM/KILOGRAM, 2X/12 HOURS
  3. VALPROIC ACID [Concomitant]
     Active Substance: VALPROIC ACID
     Indication: Product used for unknown indication
     Dosage: 50 MILLIGRAM/KILOGRAM, 3X/DAY (TID)
  4. CARBAMAZEPINE [Concomitant]
     Active Substance: CARBAMAZEPINE
     Indication: Product used for unknown indication
     Dosage: 30 MILLIGRAM/KILOGRAM, 3X/DAY (TID)
  5. CLOBAZAM [Concomitant]
     Active Substance: CLOBAZAM
     Indication: Product used for unknown indication
     Dosage: 1 MG/KG
  6. LAMOTRIGINE [Concomitant]
     Active Substance: LAMOTRIGINE
     Indication: Product used for unknown indication
     Dosage: 3 MILLIGRAM, 2X/12 HOURS
     Route: 048
  7. LAMOTRIGINE [Concomitant]
     Active Substance: LAMOTRIGINE
     Dosage: 5 MILLIGRAM, 2X/12 HOURS
     Route: 048
  8. FERROUS SULFATE [Concomitant]
     Active Substance: FERROUS SULFATE
     Indication: Product used for unknown indication
     Dosage: 5 DROPS/DAY (1 MG/KG/DAY)
  9. VITAMIN D3 [Concomitant]
     Active Substance: CHOLECALCIFEROL
     Indication: Product used for unknown indication
     Dosage: 200 IU/DROP) 400 IU/DAY
  10. LEVOTHYROXINE [Concomitant]
     Active Substance: LEVOTHYROXINE
     Indication: Product used for unknown indication
     Dosage: 25 MCG
  11. PHENYTOIN [Concomitant]
     Active Substance: PHENYTOIN
     Indication: Product used for unknown indication
     Dosage: 7.5 MILLIGRAM/KILOGRAM
  12. PHENYTOIN [Concomitant]
     Active Substance: PHENYTOIN
     Dosage: 5 MILLIGRAM/KILOGRAM
     Dates: end: 20230328
  13. ZINC [Concomitant]
     Active Substance: ZINC
     Indication: Product used for unknown indication
     Dosage: 4 MG/ML - 20 MG
     Dates: start: 20230313, end: 20230323

REACTIONS (3)
  - Epilepsy [Unknown]
  - Hypothyroidism [Unknown]
  - Drug interaction [Unknown]

NARRATIVE: CASE EVENT DATE: 20230325
